FAERS Safety Report 5090092-1 (Version None)
Quarter: 2006Q3

REPORT INFORMATION
  Report Type: 
  Country: None (occurrence: None)
  Receive Date: 20060823
  Receipt Date: 20060814
  Transmission Date: 20061208
  Serious: Yes (Other)
  Sender: FDA-Public Use
  Company Number: 2006098813

PATIENT

DRUGS (1)
  1. NEURONTIN [Suspect]
     Indication: SCIATICA
     Dosage: 3600 MG
     Dates: start: 20040401

REACTIONS (4)
  - DIPLOPIA [None]
  - INADEQUATE ANALGESIA [None]
  - OPTIC NERVE DISORDER [None]
  - THERAPY REGIMEN CHANGED [None]
